FAERS Safety Report 13984743 (Version 3)
Quarter: 2017Q4

REPORT INFORMATION
  Report Type: Spontaneous
  Country: US (occurrence: US)
  Receive Date: 20170918
  Receipt Date: 20171004
  Transmission Date: 20180321
  Serious: Yes (Other)
  Sender: FDA-Public Use
  Company Number: US-TEVA-806769USA

PATIENT
  Age: 88 Year
  Sex: Male

DRUGS (2)
  1. SUCRALFATE. [Suspect]
     Active Substance: SUCRALFATE
     Indication: GASTROENTERITIS
     Dosage: 1 TABLET 4 TIMES A DAY AS NEEDED
     Route: 048
     Dates: start: 20170818, end: 20170911
  2. SUCRALFATE. [Suspect]
     Active Substance: SUCRALFATE
     Indication: GASTRITIS

REACTIONS (8)
  - Choking [Recovered/Resolved]
  - Dysphagia [Unknown]
  - Oesophageal disorder [Unknown]
  - Throat irritation [Unknown]
  - Foreign body in respiratory tract [Recovered/Resolved]
  - Dyspnoea [Unknown]
  - Product physical issue [Unknown]
  - Aphasia [Unknown]

NARRATIVE: CASE EVENT DATE: 2017
